FAERS Safety Report 12988499 (Version 2)
Quarter: 2016Q4

REPORT INFORMATION
  Report Type: Spontaneous
  Country: DE (occurrence: DE)
  Receive Date: 20161130
  Receipt Date: 20161219
  Transmission Date: 20170207
  Serious: Yes (Hospitalization)
  Sender: FDA-Public Use
  Company Number: DE-JNJFOC-20161124118

PATIENT
  Sex: Male

DRUGS (1)
  1. DARZALEX [Suspect]
     Active Substance: DARATUMUMAB
     Indication: PLASMA CELL MYELOMA
     Route: 042

REACTIONS (6)
  - Neutropenia [Recovering/Resolving]
  - Disease progression [Unknown]
  - Immune thrombocytopenic purpura [Recovering/Resolving]
  - Leukopenia [Unknown]
  - Drug ineffective [Unknown]
  - Aplasia [Recovering/Resolving]

NARRATIVE: CASE EVENT DATE: 201609
